FAERS Safety Report 17879626 (Version 1)
Quarter: 2020Q2

REPORT INFORMATION
  Report Type: Spontaneous
  Country: IT (occurrence: IT)
  Receive Date: 20200610
  Receipt Date: 20200610
  Transmission Date: 20200714
  Serious: Yes (Other)
  Sender: FDA-Public Use
  Company Number: NVSC2020IT160748

PATIENT
  Age: 62 Year
  Sex: Male

DRUGS (3)
  1. CARBIDOPA,LEVODOPA [Suspect]
     Active Substance: CARBIDOPA\LEVODOPA
     Indication: PARKINSON^S DISEASE
     Route: 048
  2. ENTACAPONE. [Suspect]
     Active Substance: ENTACAPONE
     Dosage: 200 MG, 6QD
     Route: 048
  3. ENTACAPONE. [Suspect]
     Active Substance: ENTACAPONE
     Indication: PARKINSON^S DISEASE
     Dosage: 200 MG, 8QD
     Route: 048

REACTIONS (1)
  - Parkinsonism hyperpyrexia syndrome [Recovered/Resolved]
